FAERS Safety Report 17999462 (Version 1)
Quarter: 2020Q3

REPORT INFORMATION
  Report Type: Spontaneous
  Country: US (occurrence: US)
  Receive Date: 20200709
  Receipt Date: 20200709
  Transmission Date: 20201103
  Serious: Yes (Death)
  Sender: FDA-Public Use
  Company Number: None

PATIENT
  Age: 68 Year
  Sex: Female

DRUGS (4)
  1. LIDOCAINE. [Concomitant]
     Active Substance: LIDOCAINE
     Dates: start: 20200405
  2. TRAMADOL. [Concomitant]
     Active Substance: TRAMADOL
     Dates: start: 20200405
  3. LENVIMA [Suspect]
     Active Substance: LENVATINIB
     Indication: NEOPLASM MALIGNANT
     Route: 048
     Dates: start: 20200602, end: 20200707
  4. FENTANYL. [Concomitant]
     Active Substance: FENTANYL
     Dates: start: 20200615

REACTIONS (1)
  - Death [None]

NARRATIVE: CASE EVENT DATE: 20200708
